FAERS Safety Report 5929452-2 (Version None)
Quarter: 2008Q4

REPORT INFORMATION
  Report Type: 
  Country: None (occurrence: None)
  Receive Date: 20081024
  Receipt Date: 20081014
  Transmission Date: 20090506
  Serious: Yes (Hospitalization)
  Sender: FDA-Public Use
  Company Number: DE-ELI_LILLY_AND_COMPANY-DE200810003397

PATIENT
  Age: 12 Year
  Sex: Female

DRUGS (4)
  1. STRATTERA [Suspect]
     Indication: ATTENTION DEFICIT/HYPERACTIVITY DISORDER
     Dosage: UNK, UNKNOWN
     Route: 065
     Dates: end: 20080101
  2. STRATTERA [Suspect]
     Dosage: 40 MG, DAILY (1/D)
     Route: 048
     Dates: start: 20080101, end: 20081010
  3. ACETAMINOPHEN [Concomitant]
     Dosage: UNK, AS NEEDED
     Route: 065
  4. IBUPROFEN [Concomitant]
     Dosage: UNK, AS NEEDED
     Route: 065

REACTIONS (6)
  - ASTHENIA [None]
  - DECREASED ACTIVITY [None]
  - HEADACHE [None]
  - HOSPITALISATION [None]
  - NAUSEA [None]
  - TACHYCARDIA [None]
